FAERS Safety Report 18005738 (Version 5)
Quarter: 2020Q4

REPORT INFORMATION
  Report Type: Spontaneous
  Country: IT (occurrence: IT)
  Receive Date: 20200710
  Receipt Date: 20201015
  Transmission Date: 20210113
  Serious: Yes (Hospitalization, Other)
  Sender: FDA-Public Use
  Company Number: NVSC2020IT180687

PATIENT
  Age: 25 Year
  Sex: Male

DRUGS (10)
  1. AZITHROMYCIN DIHYDRATE. [Suspect]
     Active Substance: AZITHROMYCIN DIHYDRATE
     Indication: CORONAVIRUS INFECTION
     Dosage: 500 MG, QD
     Route: 048
     Dates: start: 20200402
  2. PLAQUENIL [Interacting]
     Active Substance: HYDROXYCHLOROQUINE SULFATE
     Indication: CORONAVIRUS INFECTION
     Dosage: 200 MG, QD (1/DAY)
     Route: 048
     Dates: start: 20200402, end: 20200408
  3. AUGMENTIN [Suspect]
     Active Substance: AMOXICILLIN\CLAVULANATE POTASSIUM
     Indication: COVID-19 PNEUMONIA
  4. DICLOREUM [Concomitant]
     Active Substance: DICLOFENAC SODIUM
     Indication: SCIATICA
     Dosage: 1 DF, STRENGTH-75 MG / 3 ML ONCE
     Route: 030
  5. AZITHROMYCIN DIHYDRATE. [Interacting]
     Active Substance: AZITHROMYCIN DIHYDRATE
     Indication: COVID-19 PNEUMONIA
  6. PLAQUENIL [Interacting]
     Active Substance: HYDROXYCHLOROQUINE SULFATE
     Indication: COVID-19 PNEUMONIA
  7. DICLOREUM [Concomitant]
     Active Substance: DICLOFENAC SODIUM
     Dosage: 1 DF, ONCE
     Route: 048
     Dates: start: 20200408
  8. AUGMENTIN [Suspect]
     Active Substance: AMOXICILLIN\CLAVULANATE POTASSIUM
     Indication: CORONAVIRUS INFECTION
     Dosage: 1 G, QD
     Route: 048
     Dates: start: 20200402
  9. CLEXANE [Concomitant]
     Active Substance: ENOXAPARIN SODIUM
     Indication: CORONAVIRUS INFECTION
     Dosage: 1 DF, QD (1/DAY)
     Route: 058
     Dates: start: 20200403
  10. CLEXANE [Concomitant]
     Active Substance: ENOXAPARIN SODIUM
     Indication: COVID-19 PNEUMONIA

REACTIONS (5)
  - Drug interaction [Unknown]
  - Pruritus [Recovering/Resolving]
  - Product use in unapproved indication [Unknown]
  - Rash [Recovering/Resolving]
  - Off label use [Unknown]

NARRATIVE: CASE EVENT DATE: 20200407
